FAERS Safety Report 26065395 (Version 1)
Quarter: 2025Q4

REPORT INFORMATION
  Report Type: Spontaneous
  Country: BY (occurrence: BY)
  Receive Date: 20251119
  Receipt Date: 20251119
  Transmission Date: 20260118
  Serious: Yes (Death)
  Sender: INCYTE
  Company Number: BY-002147023-NVSC2025BY176522

PATIENT

DRUGS (1)
  1. RUXOLITINIB [Suspect]
     Active Substance: RUXOLITINIB
     Indication: Acute graft versus host disease
     Dosage: 10 MG, BID FOLLOWED BY DOSE ADJUSTMENT IF NECESSARY
     Route: 065

REACTIONS (1)
  - Acute graft versus host disease [Fatal]
